FAERS Safety Report 5744303-7 (Version None)
Quarter: 2008Q2

REPORT INFORMATION
  Report Type: 
  Country: None (occurrence: None)
  Receive Date: 20080516
  Receipt Date: 20080516
  Transmission Date: 20081010
  Serious: Yes (Life-Threatening, Disabling)
  Sender: FDA-Public Use
  Company Number: None

PATIENT
  Sex: Female
  Weight: 74.8435 kg

DRUGS (1)
  1. ENBREL [Suspect]
     Indication: PSORIASIS
     Dosage: 25MGS TWICE PER WEEK WEEKLY SQ
     Route: 058
     Dates: start: 20010401, end: 20080301

REACTIONS (3)
  - INFECTION [None]
  - LUNG NEOPLASM MALIGNANT [None]
  - UTERINE LEIOMYOMA [None]
